FAERS Safety Report 8275739-0 (Version None)
Quarter: 2012Q2

REPORT INFORMATION
  Report Type: 
  Country: None (occurrence: None)
  Receive Date: 20120410
  Receipt Date: 20120410
  Transmission Date: 20120825
  Serious: Yes (Death, Disabling)
  Sender: FDA-Public Use
  Company Number: None

PATIENT
  Sex: Female
  Weight: 53.5244 kg

DRUGS (1)
  1. GABAPENTIN [Suspect]
     Indication: NEUROPATHY PERIPHERAL
     Dosage: 900 MG DAILY ORAL
     Dates: start: 20110825, end: 20110905

REACTIONS (8)
  - BEDRIDDEN [None]
  - CATATONIA [None]
  - DISORIENTATION [None]
  - INCONTINENCE [None]
  - DECREASED APPETITE [None]
  - DECREASED INTEREST [None]
  - DEHYDRATION [None]
  - GENERAL PHYSICAL HEALTH DETERIORATION [None]
